FAERS Safety Report 6055410-6 (Version None)
Quarter: 2009Q1

REPORT INFORMATION
  Report Type: 
  Country: None (occurrence: None)
  Receive Date: 20090128
  Receipt Date: 20090120
  Transmission Date: 20090719
  Serious: Yes (Life-Threatening, Hospitalization)
  Sender: FDA-Public Use
  Company Number: GB-PFIZER INC-2009157224

PATIENT

DRUGS (15)
  1. LYRICA [Suspect]
     Indication: MULTIPLE SCLEROSIS
     Route: 048
     Dates: start: 20080716, end: 20081202
  2. LYRICA [Suspect]
     Indication: PAIN
  3. ACETYLSALICYLIC ACID [Concomitant]
     Dosage: 75 MG, 1X/DAY
     Route: 048
  4. BACLOFEN [Concomitant]
     Dosage: 5 MG, 3X/DAY
     Route: 048
  5. CANDESARTAN [Concomitant]
     Dosage: 8 MG, 1X/DAY
     Route: 048
  6. ACETAMINOPHEN W/ CODEINE [Concomitant]
     Dosage: 75 MG, 2X/DAY
     Route: 048
  7. CORSODYL [Concomitant]
     Route: 048
  8. DESMOPRESSIN [Concomitant]
     Route: 045
  9. DIAZEPAM [Concomitant]
     Dosage: 5 MG, 3X/DAY
     Route: 048
  10. DICLOFENAC SODIUM [Concomitant]
     Dosage: 75 MG, 2X/DAY
     Route: 048
  11. OLMESARTAN MEDOXOMIL [Concomitant]
     Dosage: 10 MG, 1X/DAY
     Route: 048
  12. PANTOPRAZOLE [Concomitant]
     Dosage: 20 MG, 2X/DAY
     Route: 048
  13. SIMVASTATIN [Concomitant]
     Dosage: 40 MG, 1X/DAY
     Route: 048
  14. SYMBICORT [Concomitant]
     Dosage: UNK
  15. VIAZEM XL [Concomitant]
     Dosage: 180 MG, 1X/DAY
     Route: 048

REACTIONS (1)
  - ACUTE MYOCARDIAL INFARCTION [None]
